FAERS Safety Report 18678834 (Version 1)
Quarter: 2020Q4

REPORT INFORMATION
  Report Type: Spontaneous
  Country: BE (occurrence: BE)
  Receive Date: 20201229
  Receipt Date: 20201229
  Transmission Date: 20210114
  Serious: Yes (Life-Threatening, Hospitalization, Other)
  Sender: FDA-Public Use
  Company Number: BE-AMNEAL PHARMACEUTICALS-2020-AMRX-04048

PATIENT

DRUGS (1)
  1. HYDROXYCHLOROQUINE SULFATE. [Suspect]
     Active Substance: HYDROXYCHLOROQUINE SULFATE
     Indication: PRODUCT USED FOR UNKNOWN INDICATION
     Dosage: 18 GRAM
     Route: 065

REACTIONS (5)
  - Cardiogenic shock [Recovered/Resolved]
  - Ventricular arrhythmia [Recovered/Resolved]
  - Loss of consciousness [Recovered/Resolved]
  - Pulmonary oedema [Recovered/Resolved]
  - Toxicity to various agents [Recovered/Resolved]
